FAERS Safety Report 23473969 (Version 1)
Quarter: 2024Q1

REPORT INFORMATION
  Report Type: Other
  Country: ZA (occurrence: None)
  Receive Date: 20240203
  Receipt Date: 20240203
  Transmission Date: 20240410
  Serious: No
  Sender: FDA-Public Use
  Company Number: ZA-ROCHE-3444826

PATIENT
  Age: 37 Year
  Sex: Female
  Weight: 60 kg

DRUGS (1)
  1. OCREVUS [Suspect]
     Active Substance: OCRELIZUMAB
     Indication: Multiple sclerosis
     Dosage: FREQUENCY: 2, THEREATER 600MG EVERY 6 MONTHS
     Route: 041
     Dates: start: 20231020

REACTIONS (7)
  - Pyrexia [Recovered/Resolved]
  - Pain [Recovered/Resolved]
  - Hypoaesthesia [Unknown]
  - Gait disturbance [Unknown]
  - Neck pain [Unknown]
  - Herpes zoster [Unknown]
  - Infection [Unknown]

NARRATIVE: CASE EVENT DATE: 20231020
